FAERS Safety Report 8144036-6 (Version None)
Quarter: 2012Q1

REPORT INFORMATION
  Report Type: 
  Country: None (occurrence: None)
  Receive Date: 20120217
  Receipt Date: 20120217
  Transmission Date: 20120608
  Serious: Yes (Other)
  Sender: FDA-Public Use
  Company Number: None

PATIENT
  Sex: Male

DRUGS (1)
  1. SULFAMETHOXAZOLE AND TRIMETHOPRIM [Suspect]
     Indication: PHARYNGITIS
     Dosage: 1 TABLET
     Route: 048
     Dates: start: 20120215, end: 20120215

REACTIONS (11)
  - HEART RATE INCREASED [None]
  - PARAESTHESIA [None]
  - DYSPNOEA [None]
  - DIZZINESS [None]
  - PRURITUS [None]
  - UNEVALUABLE EVENT [None]
  - PARANOIA [None]
  - THROAT TIGHTNESS [None]
  - CHEST DISCOMFORT [None]
  - FEELING ABNORMAL [None]
  - DISORIENTATION [None]
